FAERS Safety Report 5672887-6 (Version None)
Quarter: 2008Q1

REPORT INFORMATION
  Report Type: 
  Country: None (occurrence: None)
  Receive Date: 20080319
  Receipt Date: 20071207
  Transmission Date: 20080703
  Serious: No
  Sender: FDA-Public Use
  Company Number: US-ASTRAZENECA-2007UW26701

PATIENT
  Age: 25 Year
  Sex: Female
  Weight: 71.7 kg

DRUGS (10)
  1. SYMBICORT [Suspect]
     Indication: ASTHMA
     Dosage: 160/4.5 MCG BID
     Route: 055
     Dates: start: 20071001
  2. TOPAMAX [Concomitant]
     Dates: end: 20010101
  3. TOPAMAX [Concomitant]
     Dates: start: 20071101
  4. SEROQUEL [Concomitant]
  5. ADDERALL 10 [Concomitant]
  6. GUAIFENESIN [Concomitant]
  7. PROVENTIL [Concomitant]
  8. XOPENEX [Concomitant]
  9. ALLEGRA [Concomitant]
  10. BENADRYL [Concomitant]

REACTIONS (9)
  - BLOOD POTASSIUM ABNORMAL [None]
  - DEPRESSION [None]
  - FATIGUE [None]
  - HEADACHE [None]
  - MUSCLE SPASMS [None]
  - PARAESTHESIA [None]
  - THIRST [None]
  - WEIGHT DECREASED [None]
  - WEIGHT INCREASED [None]
